FAERS Safety Report 8155114-X (Version None)
Quarter: 2012Q1

REPORT INFORMATION
  Report Type: 
  Country: None (occurrence: None)
  Receive Date: 20120221
  Receipt Date: 20120209
  Transmission Date: 20120608
  Serious: Yes (Hospitalization, Other)
  Sender: FDA-Public Use
  Company Number: FR-ROCHE-1000431

PATIENT
  Age: 50 Year
  Sex: Female

DRUGS (5)
  1. VEMURAFENIB [Suspect]
     Route: 048
     Dates: start: 20111001
  2. NEURONTIN [Concomitant]
     Route: 048
  3. NEBIVOLOL HCL [Concomitant]
     Route: 048
  4. VEMURAFENIB [Suspect]
     Indication: METASTATIC MALIGNANT MELANOMA
     Route: 048
     Dates: start: 20110913, end: 20110920
  5. XANAX [Concomitant]
     Route: 048

REACTIONS (3)
  - PARAESTHESIA [None]
  - PARALYSIS FLACCID [None]
  - PARESIS [None]
